FAERS Safety Report 14526356 (Version 2)
Quarter: 2018Q2

REPORT INFORMATION
  Report Type: Spontaneous
  Country: US (occurrence: US)
  Receive Date: 20180213
  Receipt Date: 20180412
  Transmission Date: 20180711
  Serious: No
  Sender: FDA-Public Use
  Company Number: US-ASTRAZENECA-2018SE18272

PATIENT
  Sex: Female

DRUGS (1)
  1. TUDORZA PRESSAIR [Suspect]
     Active Substance: ACLIDINIUM BROMIDE
     Dosage: 400MCG ONE INHALATION EVERY 12 HOURS
     Route: 055
     Dates: start: 2017

REACTIONS (3)
  - Product quality issue [Unknown]
  - Stress [Unknown]
  - Eye disorder [Unknown]
